FAERS Safety Report 9732806 (Version 6)
Quarter: 2017Q4

REPORT INFORMATION
  Report Type: Spontaneous
  Country: US (occurrence: US)
  Receive Date: 20131204
  Receipt Date: 20171127
  Transmission Date: 20180321
  Serious: Yes (Hospitalization, Disabling, Other)
  Sender: FDA-Public Use
  Company Number: US-009507513-1312USA001407

PATIENT
  Sex: Female
  Weight: 62.59 kg

DRUGS (3)
  1. VITAMINS (UNSPECIFIED) [Concomitant]
     Active Substance: VITAMINS
     Dosage: UNK, QD
     Dates: start: 2003
  2. FOSAMAX [Suspect]
     Active Substance: ALENDRONATE SODIUM
     Indication: OSTEOPENIA
     Dosage: UNK UNK, QD
     Route: 048
     Dates: start: 200405, end: 200607
  3. ALENDRONATE SODIUM. [Suspect]
     Active Substance: ALENDRONATE SODIUM
     Indication: OSTEOPOROSIS
     Dosage: 70 MG, QW
     Route: 048
     Dates: start: 20060721, end: 2011

REACTIONS (23)
  - Open reduction of fracture [Unknown]
  - Arthropathy [Unknown]
  - Heart rate irregular [Unknown]
  - Incontinence [Unknown]
  - Ovarian calcification [Unknown]
  - Femur fracture [Recovering/Resolving]
  - Pubis fracture [Recovered/Resolved]
  - Osteoarthritis [Unknown]
  - Device breakage [Unknown]
  - Knee arthroplasty [Unknown]
  - Exostosis [Unknown]
  - Osteoporosis [Not Recovered/Not Resolved]
  - Pelvic fracture [Recovering/Resolving]
  - Arthralgia [Not Recovered/Not Resolved]
  - Pelvic fracture [Unknown]
  - Bone density decreased [Unknown]
  - Uterine disorder [Unknown]
  - Low turnover osteopathy [Not Recovered/Not Resolved]
  - Pubis fracture [Recovering/Resolving]
  - Glaucoma [Unknown]
  - Internal fixation of fracture [Unknown]
  - Diverticulum intestinal [Unknown]
  - Osteoarthritis [Unknown]

NARRATIVE: CASE EVENT DATE: 20040806
